FAERS Safety Report 4374098-3 (Version None)
Quarter: 2004Q2

REPORT INFORMATION
  Report Type: 
  Country: None (occurrence: None)
  Receive Date: 20040604
  Receipt Date: 20040528
  Transmission Date: 20050107
  Serious: No
  Sender: FDA-Public Use
  Company Number: 2004UW11199

PATIENT
  Age: 83 Year
  Sex: Female

DRUGS (7)
  1. TOPROL-XL [Suspect]
     Indication: MYOCARDIAL INFARCTION
     Dosage: 50 MG PO
     Route: 048
     Dates: start: 20011001
  2. ASPIRIN [Concomitant]
  3. ALTACE [Concomitant]
  4. LIPITOR [Concomitant]
  5. SYNTHROID [Concomitant]
  6. BEXTRA [Concomitant]
  7. PLAVIX [Concomitant]

REACTIONS (3)
  - DIPLOPIA [None]
  - GENERAL PHYSICAL HEALTH DETERIORATION [None]
  - MYASTHENIA GRAVIS [None]
